FAERS Safety Report 4838031-X (Version None)
Quarter: 2005Q4

REPORT INFORMATION
  Report Type: 
  Country: None (occurrence: None)
  Receive Date: 20051123
  Receipt Date: 20051123
  Transmission Date: 20060501
  Serious: Yes (Life-Threatening)
  Sender: FDA-Public Use
  Company Number: None

PATIENT
  Age: 84 Year
  Sex: Female
  Weight: 68.0396 kg

DRUGS (11)
  1. HEPARIN [Suspect]
     Indication: PULMONARY EMBOLISM
     Dosage: 900 UNITS/HR
     Dates: start: 20050615, end: 20050701
  2. ANCEPT [Concomitant]
  3. COLACE [Concomitant]
  4. GLUCOPHAGE [Concomitant]
  5. INSULIN [Concomitant]
  6. IBUPROFEN [Concomitant]
  7. ASPIRIN [Concomitant]
  8. DIOVAN [Concomitant]
  9. NEXIUM [Concomitant]
  10. PHENYTOIN [Concomitant]
  11. LEXAPRO [Concomitant]

REACTIONS (2)
  - ANTI-PLATELET ANTIBODY POSITIVE [None]
  - PLATELET COUNT DECREASED [None]
